FAERS Safety Report 7461113-3 (Version None)
Quarter: 2011Q2

REPORT INFORMATION
  Report Type: 
  Country: None (occurrence: None)
  Receive Date: 20110505
  Receipt Date: 20090520
  Transmission Date: 20111010
  Serious: Yes (Other)
  Sender: FDA-Public Use
  Company Number: DE-GENENTECH-318077

PATIENT
  Age: 83 Year
  Sex: Female

DRUGS (1)
  1. LUCENTIS [Suspect]
     Indication: AGE-RELATED MACULAR DEGENERATION
     Route: 031

REACTIONS (17)
  - SPINAL OSTEOARTHRITIS [None]
  - ACCIDENT [None]
  - ASTHENIA [None]
  - CONCUSSION [None]
  - RETINAL SCAR [None]
  - FALL [None]
  - CRANIAL NERVE INJURY [None]
  - RIB FRACTURE [None]
  - CONTUSION [None]
  - ANXIETY [None]
  - NAIL BED INFLAMMATION [None]
  - EXCORIATION [None]
  - AGE-RELATED MACULAR DEGENERATION [None]
  - PAIN [None]
  - LIMB DISCOMFORT [None]
  - NASOPHARYNGITIS [None]
  - VISUAL ACUITY REDUCED [None]
